FAERS Safety Report 10669360 (Version 4)
Quarter: 2015Q1

REPORT INFORMATION
  Report Type: Spontaneous
  Country: JP (occurrence: JP)
  Receive Date: 20141222
  Receipt Date: 20150205
  Transmission Date: 20150720
  Serious: Yes (Life-Threatening, Hospitalization, Other)
  Sender: FDA-Public Use
  Company Number: JP-PFIZER INC-2014290898

PATIENT
  Sex: Male
  Weight: 2.99 kg

DRUGS (1)
  1. JZOLOFT [Suspect]
     Active Substance: SERTRALINE HYDROCHLORIDE
     Indication: BIPOLAR II DISORDER
     Dosage: 100 MG, 1X/DAY
     Route: 064
     Dates: end: 20141020

REACTIONS (12)
  - Drug withdrawal syndrome neonatal [Recovering/Resolving]
  - Irritability [Recovered/Resolved]
  - Maternal exposure during pregnancy [Unknown]
  - Retinal haemorrhage [Recovering/Resolving]
  - Jaundice neonatal [Recovered/Resolved]
  - Intraventricular haemorrhage neonatal [Recovering/Resolving]
  - Subarachnoid haemorrhage [Recovering/Resolving]
  - Neonatal asphyxia [Recovered/Resolved]
  - Tremor [Recovered/Resolved]
  - Birth trauma [Recovered/Resolved]
  - Heart sounds abnormal [Recovered/Resolved]
  - Restlessness [Recovered/Resolved]

NARRATIVE: CASE EVENT DATE: 20141020
